FAERS Safety Report 12077576 (Version 1)
Quarter: 2016Q1

REPORT INFORMATION
  Report Type: Other
  Country: JP (occurrence: JP)
  Receive Date: 20160215
  Receipt Date: 20160215
  Transmission Date: 20160526
  Serious: Yes (Hospitalization, Other)
  Sender: FDA-Public Use
  Company Number: JP-MEDTRONIC-1047802

PATIENT
  Age: 7 Year
  Sex: Male

DRUGS (1)
  1. GABALON [Suspect]
     Active Substance: BACLOFEN
     Indication: MUSCLE SPASTICITY
     Route: 037

REACTIONS (6)
  - Drug withdrawal syndrome [Unknown]
  - CSF protein increased [Unknown]
  - Hyperreflexia [Unknown]
  - Tachycardia [Unknown]
  - Hypertonia [Recovered/Resolved with Sequelae]
  - No therapeutic response [Recovered/Resolved with Sequelae]
